FAERS Safety Report 8175233-1 (Version None)
Quarter: 2012Q1

REPORT INFORMATION
  Report Type: 
  Country: None (occurrence: None)
  Receive Date: 20120229
  Receipt Date: 20120223
  Transmission Date: 20120608
  Serious: Yes (Hospitalization, Other)
  Sender: FDA-Public Use
  Company Number: US-ABBOTT-12P-163-0908526-00

PATIENT
  Age: 42 Year
  Sex: Female

DRUGS (1)
  1. HUMIRA [Suspect]
     Indication: CROHN'S DISEASE
     Dates: start: 20111128

REACTIONS (5)
  - ANAEMIA [None]
  - FATIGUE [None]
  - INJECTION SITE PAIN [None]
  - MALAISE [None]
  - ABDOMINAL ABSCESS [None]
